FAERS Safety Report 7650636-X (Version None)
Quarter: 2011Q3

REPORT INFORMATION
  Report Type: 
  Country: None (occurrence: None)
  Receive Date: 20110802
  Receipt Date: 20110721
  Transmission Date: 20111222
  Serious: Yes (Other)
  Sender: FDA-Public Use
  Company Number: US-ROCHE-793156

PATIENT
  Age: 24 Year
  Sex: Female

DRUGS (4)
  1. AVASTIN [Suspect]
     Route: 065
  2. OXALIPLATIN [Suspect]
     Route: 065
  3. LEUCOVORIN CALCIUM [Suspect]
     Route: 065
  4. FLUOROURACIL [Suspect]
     Route: 065

REACTIONS (3)
  - HAEMATOMA [None]
  - VISION BLURRED [None]
  - HAEMORRHAGE [None]
